FAERS Safety Report 20850482 (Version 8)
Quarter: 2025Q1

REPORT INFORMATION
  Report Type: Spontaneous
  Country: US (occurrence: US)
  Receive Date: 20220519
  Receipt Date: 20250205
  Transmission Date: 20250409
  Serious: No
  Sender: PFIZER
  Company Number: US-PFIZER INC-202200689733

PATIENT
  Age: 64 Year
  Sex: Female

DRUGS (8)
  1. IBRANCE [Suspect]
     Active Substance: PALBOCICLIB
     Indication: Breast cancer female
     Route: 048
     Dates: start: 20220210
  2. IBRANCE [Suspect]
     Active Substance: PALBOCICLIB
     Indication: Hormone receptor positive breast cancer
  3. IBRANCE [Suspect]
     Active Substance: PALBOCICLIB
     Indication: Metastases to lymph nodes
  4. IBRANCE [Suspect]
     Active Substance: PALBOCICLIB
     Indication: Breast cancer recurrent
  5. FASLODEX [Suspect]
     Active Substance: FULVESTRANT
  6. AMLODIPINE [Concomitant]
     Active Substance: AMLODIPINE BESYLATE
  7. IRBESARTAN [Concomitant]
     Active Substance: IRBESARTAN
  8. ZYRTEC [Concomitant]
     Active Substance: CETIRIZINE HYDROCHLORIDE

REACTIONS (5)
  - Back pain [Unknown]
  - Neoplasm recurrence [Unknown]
  - Thirst [Not Recovered/Not Resolved]
  - Dermatitis [Not Recovered/Not Resolved]
  - Diarrhoea [Not Recovered/Not Resolved]

NARRATIVE: CASE EVENT DATE: 20220101
